FAERS Safety Report 5939609-2 (Version None)
Quarter: 2008Q4

REPORT INFORMATION
  Report Type: 
  Country: None (occurrence: None)
  Receive Date: 20081030
  Receipt Date: 20081021
  Transmission Date: 20090506
  Serious: Yes (Hospitalization)
  Sender: FDA-Public Use
  Company Number: 2008BI015150

PATIENT
  Age: 53 Year
  Sex: Female

DRUGS (1)
  1. AVONEX [Suspect]
     Indication: MULTIPLE SCLEROSIS
     Dosage: 30 UG; QW; IM, 30 UG; QW; IM
     Route: 030
     Dates: start: 20080516, end: 20080603

REACTIONS (10)
  - DISORIENTATION [None]
  - EROSIVE OESOPHAGITIS [None]
  - FALL [None]
  - GASTROINTESTINAL HAEMORRHAGE [None]
  - HEAD INJURY [None]
  - IRON DEFICIENCY ANAEMIA [None]
  - PNEUMONIA [None]
  - RIB FRACTURE [None]
  - STAPHYLOCOCCAL INFECTION [None]
  - WRIST FRACTURE [None]
